FAERS Safety Report 8415808-5 (Version None)
Quarter: 2012Q2

REPORT INFORMATION
  Report Type: 
  Country: None (occurrence: None)
  Receive Date: 20120530
  Receipt Date: 20120518
  Transmission Date: 20120825
  Serious: Yes (Hospitalization)
  Sender: FDA-Public Use
  Company Number: 12000729

PATIENT
  Sex: Female

DRUGS (4)
  1. PROZAC [Concomitant]
  2. LYRICA [Concomitant]
  3. INDERAL [Concomitant]
  4. BACLOFEN [Suspect]
     Indication: MUSCLE SPASMS
     Dosage: 10 MG, EVERY 6-8 HOURS, ORAL
     Route: 048
     Dates: start: 20120301, end: 20120301

REACTIONS (4)
  - AMNESIA [None]
  - HALLUCINATION, VISUAL [None]
  - LOSS OF CONSCIOUSNESS [None]
  - FACIAL BONES FRACTURE [None]
